FAERS Safety Report 8765260 (Version 1)
Quarter: 2012Q4

REPORT INFORMATION
  Report Type: 
  Country: US (occurrence: US)
  Receive Date: 20120831
  Receipt Date: 20120831
  Transmission Date: 20130627
  Serious: No
  Sender: FDA-Public Use
  Company Number: US-PFIZER INC-2012212920

PATIENT
  Age: 64 Year
  Sex: Female
  Weight: 89.3 kg

DRUGS (3)
  1. LYRICA [Suspect]
     Indication: FIBROMYALGIA
     Dosage: UNK
     Route: 048
  2. LYRICA [Suspect]
     Dosage: 150 mg, 1x/day
     Route: 048
     Dates: start: 201208, end: 201208
  3. PROCARDIA [Concomitant]
     Indication: HYPERTENSION
     Dosage: 60 mg, 1x/day
     Route: 048

REACTIONS (1)
  - Dizziness [Recovered/Resolved]
